FAERS Safety Report 9157242 (Version 1)
Quarter: 2013Q1

REPORT INFORMATION
  Report Type: Spontaneous
  Country: US (occurrence: US)
  Receive Date: 20130312
  Receipt Date: 20130312
  Transmission Date: 20140127
  Serious: Yes (Hospitalization)
  Sender: FDA-Public Use
  Company Number: US-ENDO PHARMACEUTICALS INC.-OPCR20130112

PATIENT
  Age: 31 Year
  Sex: Male

DRUGS (1)
  1. OPANA ER [Suspect]
     Indication: DRUG ABUSE
     Dosage: UNKOWN

REACTIONS (5)
  - Endocarditis staphylococcal [Unknown]
  - Microangiopathic haemolytic anaemia [Unknown]
  - Wrong technique in drug usage process [Unknown]
  - Incorrect route of drug administration [Unknown]
  - Drug abuse [Unknown]
